FAERS Safety Report 15125046 (Version 1)
Quarter: 2018Q3

REPORT INFORMATION
  Report Type: Spontaneous
  Country: US (occurrence: US)
  Receive Date: 20180710
  Receipt Date: 20180710
  Transmission Date: 20181010
  Serious: No
  Sender: FDA-Public Use
  Company Number: US-TORRENT-00006231

PATIENT
  Age: 75 Year
  Sex: Female
  Weight: 81 kg

DRUGS (1)
  1. CELECOXIB. [Suspect]
     Active Substance: CELECOXIB
     Indication: PRODUCT USED FOR UNKNOWN INDICATION
     Dosage: UNKNOWN

REACTIONS (2)
  - Gastrooesophageal reflux disease [Unknown]
  - Eructation [Unknown]

NARRATIVE: CASE EVENT DATE: 20180430
